FAERS Safety Report 5364697-4 (Version None)
Quarter: 2007Q2

REPORT INFORMATION
  Report Type: 
  Country: None (occurrence: None)
  Receive Date: 20070621
  Receipt Date: 20070618
  Transmission Date: 20071010
  Serious: Yes (Hospitalization, Other)
  Sender: FDA-Public Use
  Company Number: HQWYE680918JUN07

PATIENT
  Age: 53 Year
  Sex: Female

DRUGS (1)
  1. PREMARIN [Suspect]
     Indication: MENOPAUSAL DISORDER
     Route: 065
     Dates: start: 20000101

REACTIONS (1)
  - ADENOCARCINOMA PANCREAS [None]
